FAERS Safety Report 15850988 (Version 1)
Quarter: 2019Q1

REPORT INFORMATION
  Report Type: Spontaneous
  Country: DE (occurrence: DE)
  Receive Date: 20190122
  Receipt Date: 20190122
  Transmission Date: 20190417
  Serious: Yes (Other)
  Sender: FDA-Public Use
  Company Number: DE-BEH-2019098620

PATIENT
  Age: 57 Year
  Sex: Male

DRUGS (1)
  1. PRIVIGEN [Suspect]
     Active Substance: HUMAN IMMUNOGLOBULIN G
     Indication: CHRONIC INFLAMMATORY DEMYELINATING POLYRADICULONEUROPATHY
     Dosage: 40 G (400 ML), EVERY 4 - 6 WEEKS
     Route: 042
     Dates: start: 2017

REACTIONS (3)
  - Hepatic enzyme increased [Not Recovered/Not Resolved]
  - Thrombocytopenia [Unknown]
  - Leukopenia [Unknown]
